FAERS Safety Report 12876035 (Version 1)
Quarter: 2016Q4

REPORT INFORMATION
  Report Type: Spontaneous
  Country: US (occurrence: US)
  Receive Date: 20161024
  Receipt Date: 20161024
  Transmission Date: 20170207
  Serious: No
  Sender: FDA-Public Use
  Company Number: US-JAZZ-2016-US-015270

PATIENT
  Sex: Male

DRUGS (21)
  1. XYREM [Suspect]
     Active Substance: SODIUM OXYBATE
     Indication: INSOMNIA
     Dosage: 5 G, BID
     Route: 048
     Dates: start: 200408, end: 200501
  2. XYREM [Suspect]
     Active Substance: SODIUM OXYBATE
     Dosage: 4.5 G, BID
     Route: 048
     Dates: start: 200501, end: 200503
  3. IBUPROFEN. [Concomitant]
     Active Substance: IBUPROFEN
  4. LOSARTAN POTASSIUM. [Concomitant]
     Active Substance: LOSARTAN POTASSIUM
  5. NAPROSYN [Concomitant]
     Active Substance: NAPROXEN
  6. NIFEDIPINE. [Concomitant]
     Active Substance: NIFEDIPINE
  7. TUMS [Concomitant]
     Active Substance: CALCIUM CARBONATE
  8. ZOLPIDEM TARTRATE. [Concomitant]
     Active Substance: ZOLPIDEM TARTRATE
  9. XYREM [Suspect]
     Active Substance: SODIUM OXYBATE
     Dosage: 4.5 G, BID
     Route: 048
     Dates: start: 201502
  10. METHYLPHENIDATE. [Concomitant]
     Active Substance: METHYLPHENIDATE
  11. XYREM [Suspect]
     Active Substance: SODIUM OXYBATE
     Dosage: 4.5 G, BID
     Route: 048
     Dates: start: 200805, end: 2009
  12. HYDRALAZINE [Concomitant]
     Active Substance: HYDRALAZINE HYDROCHLORIDE
  13. KLONOPIN [Concomitant]
     Active Substance: CLONAZEPAM
  14. ATENOLOL. [Concomitant]
     Active Substance: ATENOLOL
  15. XYREM [Suspect]
     Active Substance: SODIUM OXYBATE
     Dosage: 5 G, BID
     Route: 048
     Dates: start: 200503, end: 2005
  16. TIZANIDINE HCL [Concomitant]
     Active Substance: TIZANIDINE HYDROCHLORIDE
  17. MELATONIN [Concomitant]
     Active Substance: MELATONIN
  18. XYREM [Suspect]
     Active Substance: SODIUM OXYBATE
     Dosage: 4.5 G, BID
     Route: 048
     Dates: start: 201408, end: 2014
  19. BENADRYL ALLERGY [Concomitant]
     Active Substance: DIPHENHYDRAMINE HYDROCHLORIDE
  20. ALEVE [Concomitant]
     Active Substance: NAPROXEN SODIUM
  21. IMODIUM A-D [Concomitant]
     Active Substance: LOPERAMIDE HYDROCHLORIDE

REACTIONS (6)
  - Therapeutic response unexpected [Unknown]
  - Depression [Recovering/Resolving]
  - Initial insomnia [Not Recovered/Not Resolved]
  - Stress [Not Recovered/Not Resolved]
  - Intentional product misuse [Unknown]
  - Pre-existing condition improved [Unknown]
